FAERS Safety Report 8720185 (Version 2)
Quarter: 2012Q4

REPORT INFORMATION
  Report Type: 
  Country: US (occurrence: US)
  Receive Date: 20120813
  Receipt Date: 20120906
  Transmission Date: 20130627
  Serious: Yes (Other)
  Sender: FDA-Public Use
  Company Number: US-BAYER-2012-079804

PATIENT
  Sex: Female

DRUGS (1)
  1. MIRENA [Suspect]
     Dosage: 20 mcg/24hr, CONT
     Dates: start: 20120727, end: 20120806

REACTIONS (5)
  - Uterine perforation [None]
  - Device dislocation [None]
  - Device dislocation [None]
  - Procedural pain [None]
  - Post procedural haemorrhage [None]
